FAERS Safety Report 19623147 (Version 1)
Quarter: 2021Q3

REPORT INFORMATION
  Report Type: Spontaneous
  Country: FR (occurrence: FR)
  Receive Date: 20210729
  Receipt Date: 20210729
  Transmission Date: 20211014
  Serious: Yes (Hospitalization)
  Sender: FDA-Public Use
  Company Number: NVSC2021FR167584

PATIENT
  Age: 34 Year
  Sex: Male
  Weight: 89 kg

DRUGS (1)
  1. KYMRIAH [Suspect]
     Active Substance: TISAGENLECLEUCEL
     Indication: LYMPHOMA
     Dosage: 610 MG
     Route: 042
     Dates: start: 20200808

REACTIONS (1)
  - Kaposi sarcoma inflammatory cytokine syndrome [Recovered/Resolved]
